FAERS Safety Report 5672585-9 (Version None)
Quarter: 2008Q1

REPORT INFORMATION
  Report Type: 
  Country: None (occurrence: None)
  Receive Date: 20080317
  Receipt Date: 20080305
  Transmission Date: 20080703
  Serious: Yes (Other)
  Sender: FDA-Public Use
  Company Number: 08H-163-0313971-00

PATIENT
  Age: 41 Year
  Sex: Female
  Weight: 165 kg

DRUGS (11)
  1. DEXMEDETOMIDINE         (DEXMEDETOMIDINE HYDROCHLORIDE) [Suspect]
     Indication: MAINTENANCE OF ANAESTHESIA
     Dosage: 124 MCG, ONCE, INTRAVENOUS BOLUS; 0.4 MCG/KG/HR, INFUSION; 0.7 MCG/KG/HR, INFUSION
     Route: 040
  2. FENTANYL INJECTION                (FENTANYL CITRATE INJECTION) [Suspect]
     Indication: INDUCTION OF ANAESTHESIA
     Dosage: 5 MCG/KG
  3. SUCCINYLCHOLINE CHLORIDE [Suspect]
     Indication: INDUCTION OF ANAESTHESIA
     Dosage: 200 MG
  4. DROPERIDOL INJECTION                (DROPERIDOL) [Suspect]
     Indication: PROPHYLAXIS OF NAUSEA AND VOMITING
     Dosage: 0.625 MG
  5. NEOSTIGMINE METHYLSULFATE INJECTION [Suspect]
     Indication: NEUROMUSCULAR BLOCKADE REVERSAL
     Dosage: 4 MG
  6. DESFLURANE                 (DESFLURANE) [Suspect]
     Indication: INDUCTION OF ANAESTHESIA
  7. PROPOFOL [Concomitant]
  8. LIDOCAINE [Concomitant]
  9. VECURONIUM                 (VECURONIUM) [Concomitant]
  10. GLYCOPYRROLATE [Concomitant]
  11. NITROUS OXIDE W/ OXYGEN [Concomitant]

REACTIONS (8)
  - ATRIOVENTRICULAR BLOCK SECOND DEGREE [None]
  - DRUG INTERACTION [None]
  - ELECTROCARDIOGRAM PR PROLONGATION [None]
  - ELECTROCARDIOGRAM QT PROLONGED [None]
  - END-TIDAL CO2 DECREASED [None]
  - OBESITY [None]
  - POST PROCEDURAL COMPLICATION [None]
  - QRS AXIS ABNORMAL [None]
